FAERS Safety Report 19015777 (Version 1)
Quarter: 2021Q1

REPORT INFORMATION
  Report Type: Report from Study
  Country: GB (occurrence: GB)
  Receive Date: 20210316
  Receipt Date: 20210316
  Transmission Date: 20210420
  Serious: Yes (Death, Life-Threatening, Hospitalization)
  Sender: FDA-Public Use
  Company Number: GB-BAYER-2021-102220

PATIENT
  Age: 71 Year
  Sex: Male
  Weight: 79 kg

DRUGS (4)
  1. TRASYLOL [Suspect]
     Active Substance: APROTININ
     Indication: AORTIC DISSECTION
     Dosage: 600 MILLILITRE TOTAL LOADING DOSE 2 MILLION KIU PUMP PRIMING DOSE 2 MILLION KIU TOTAL CONTINUOUS INF
     Route: 065
     Dates: start: 20190409, end: 20190409
  2. HEPARIN [Concomitant]
     Active Substance: HEPARIN SODIUM
     Indication: ANTICOAGULANT THERAPY
     Dosage: 30 KILO?INTERNATIONAL UNIT TOTAL DURING SURGERY
     Route: 065
     Dates: start: 20190409, end: 20190409
  3. PLATELETS [Concomitant]
     Active Substance: HUMAN PLATELET, ALLOGENIC
  4. FRESH FROZEN PLASMA [Concomitant]
     Active Substance: HUMAN PLASMA
     Indication: TRANSFUSION
     Dosage: 1400 MILLILITRE TOTAL INTRA AND POST?OPERATIVELY (UPTO 48 HOURS)
     Route: 065
     Dates: start: 20190409

REACTIONS (4)
  - Off label use [None]
  - Renal impairment [None]
  - Ischaemic stroke [Fatal]
  - Product use in unapproved indication [None]

NARRATIVE: CASE EVENT DATE: 20190411
